FAERS Safety Report 5035481-6 (Version None)
Quarter: 2006Q2

REPORT INFORMATION
  Report Type: 
  Country: None (occurrence: None)
  Receive Date: 20060525
  Receipt Date: 20060215
  Transmission Date: 20061013
  Serious: No
  Sender: FDA-Public Use
  Company Number: S06-USA-00556-01

PATIENT
  Sex: Male

DRUGS (1)
  1. CAMPRAL [Suspect]

REACTIONS (1)
  - DRUG SCREEN FALSE POSITIVE [None]
